FAERS Safety Report 9687318 (Version 46)
Quarter: 2016Q4

REPORT INFORMATION
  Report Type: Report from Study
  Country: CA (occurrence: CA)
  Receive Date: 20131114
  Receipt Date: 20161220
  Transmission Date: 20170207
  Serious: Yes (Other)
  Sender: FDA-Public Use
  Company Number: CA-ROCHE-1227643

PATIENT
  Age: 63 Year
  Sex: Female
  Weight: 88 kg

DRUGS (23)
  1. RITUXAN [Suspect]
     Active Substance: RITUXIMAB
     Indication: RHEUMATOID ARTHRITIS
     Route: 042
     Dates: start: 20120427, end: 20121121
  2. WELLBUTRIN [Concomitant]
     Active Substance: BUPROPION HYDROCHLORIDE
     Route: 065
  3. SPIRIVA [Concomitant]
     Active Substance: TIOTROPIUM BROMIDE MONOHYDRATE
  4. APO-LANSOPRAZOLE [Concomitant]
     Active Substance: LANSOPRAZOLE
  5. METHYLPREDNISOLONE. [Concomitant]
     Active Substance: METHYLPREDNISOLONE
     Route: 042
     Dates: start: 20120427, end: 20121121
  6. PREDNISONE. [Concomitant]
     Active Substance: PREDNISONE
  7. HYDROCHLOROTHIAZIDE. [Concomitant]
     Active Substance: HYDROCHLOROTHIAZIDE
  8. DILTIAZEM. [Concomitant]
     Active Substance: DILTIAZEM
  9. ACTEMRA [Suspect]
     Active Substance: TOCILIZUMAB
     Indication: RHEUMATOID ARTHRITIS
     Route: 042
     Dates: start: 20130906
  10. ACTEMRA [Suspect]
     Active Substance: TOCILIZUMAB
     Dosage: FREQUENCY DAY 1 AND DAY 15
     Route: 042
     Dates: start: 20120427, end: 20121121
  11. CLONAZEPAM. [Concomitant]
     Active Substance: CLONAZEPAM
  12. CRESTOR [Concomitant]
     Active Substance: ROSUVASTATIN CALCIUM
  13. OXYCOCET [Concomitant]
     Active Substance: ACETAMINOPHEN\OXYCODONE HYDROCHLORIDE
  14. SALBUTAMOL [Concomitant]
     Active Substance: ALBUTEROL
  15. APO-METOPROLOL [Concomitant]
     Active Substance: METOPROLOL
  16. APO-SALVENT [Concomitant]
     Active Substance: ALBUTEROL
     Route: 065
  17. VENLAFAXINE ER [Concomitant]
     Active Substance: VENLAFAXINE HYDROCHLORIDE
  18. DIPHENHYDRAMINE HCL [Concomitant]
     Active Substance: DIPHENHYDRAMINE HYDROCHLORIDE
     Indication: PREMEDICATION
     Route: 048
     Dates: start: 20120427, end: 20121121
  19. ACETAMINOPHEN. [Concomitant]
     Active Substance: ACETAMINOPHEN
     Indication: PREMEDICATION
     Route: 048
     Dates: start: 20120427, end: 20121121
  20. AMITRIPTYLINE [Concomitant]
     Active Substance: AMITRIPTYLINE
  21. ACTONEL [Concomitant]
     Active Substance: RISEDRONATE SODIUM
  22. PREVACID [Concomitant]
     Active Substance: LANSOPRAZOLE
  23. ELAVIL [Concomitant]
     Active Substance: AMITRIPTYLINE HYDROCHLORIDE

REACTIONS (41)
  - Dysphagia [Unknown]
  - Abscess limb [Not Recovered/Not Resolved]
  - Weight increased [Unknown]
  - Respiratory rate increased [Unknown]
  - Heart rate increased [Unknown]
  - Malaise [Not Recovered/Not Resolved]
  - Infusion related reaction [Unknown]
  - Nasopharyngitis [Unknown]
  - Blood pressure diastolic decreased [Unknown]
  - Dyspnoea [Not Recovered/Not Resolved]
  - Rib fracture [Unknown]
  - Pain [Not Recovered/Not Resolved]
  - Heart rate increased [Unknown]
  - Oxygen saturation decreased [Unknown]
  - Arthralgia [Not Recovered/Not Resolved]
  - Head discomfort [Not Recovered/Not Resolved]
  - Skin infection [Unknown]
  - Malaise [Unknown]
  - Headache [Unknown]
  - Hypotension [Unknown]
  - Peripheral swelling [Not Recovered/Not Resolved]
  - Rash [Recovered/Resolved]
  - Pneumonia [Not Recovered/Not Resolved]
  - Cellulitis [Recovered/Resolved]
  - Lymphoedema [Recovering/Resolving]
  - Laceration [Recovered/Resolved]
  - Foot fracture [Unknown]
  - Pyrexia [Not Recovered/Not Resolved]
  - Lower respiratory tract infection [Not Recovered/Not Resolved]
  - Abdominal hernia [Not Recovered/Not Resolved]
  - Drug ineffective [Unknown]
  - Mass [Not Recovered/Not Resolved]
  - Vomiting [Unknown]
  - Wound [Not Recovered/Not Resolved]
  - Infection [Unknown]
  - Upper limb fracture [Recovered/Resolved]
  - Neoplasm malignant [Not Recovered/Not Resolved]
  - Fall [Unknown]
  - Oxygen saturation decreased [Unknown]
  - Infection [Not Recovered/Not Resolved]
  - Balance disorder [Not Recovered/Not Resolved]

NARRATIVE: CASE EVENT DATE: 2013
